FAERS Safety Report 5819910-3 (Version None)
Quarter: 2008Q3

REPORT INFORMATION
  Report Type: 
  Country: None (occurrence: None)
  Receive Date: 20080723
  Receipt Date: 20080715
  Transmission Date: 20090109
  Serious: Yes (Hospitalization)
  Sender: FDA-Public Use
  Company Number: AU-ABBOTT-08P-008-0462648-00

PATIENT
  Age: 59 Year
  Sex: Female
  Weight: 65 kg

DRUGS (1)
  1. REDUCTIL [Suspect]
     Indication: OBESITY
     Route: 048
     Dates: start: 20080101, end: 20080122

REACTIONS (2)
  - LEUKOPENIA [None]
  - NEUTROPENIA [None]
